FAERS Safety Report 24665168 (Version 1)
Quarter: 2024Q4

REPORT INFORMATION
  Report Type: Report from Study
  Country: TH (occurrence: TH)
  Receive Date: 20241126
  Receipt Date: 20241126
  Transmission Date: 20250114
  Serious: Yes (Other)
  Sender: ROCHE
  Company Number: TH-ROCHE-10000135533

PATIENT
  Age: 62 Year
  Sex: Male

DRUGS (2)
  1. TECENTRIQ [Suspect]
     Active Substance: ATEZOLIZUMAB
     Indication: Hepatocellular carcinoma
     Route: 065
  2. AVASTIN [Suspect]
     Active Substance: BEVACIZUMAB
     Indication: Hepatocellular carcinoma
     Route: 065

REACTIONS (5)
  - Haemorrhage [Unknown]
  - Angiopathy [Unknown]
  - Hepatic rupture [Unknown]
  - Neoplasm progression [Unknown]
  - Tumour invasion [Unknown]

NARRATIVE: CASE EVENT DATE: 20241103
